FAERS Safety Report 6999094-9 (Version None)
Quarter: 2010Q3

REPORT INFORMATION
  Report Type: 
  Country: None (occurrence: None)
  Receive Date: 20100920
  Receipt Date: 20100217
  Transmission Date: 20110219
  Serious: No
  Sender: FDA-Public Use
  Company Number: US-ASTRAZENECA-2009UW21194

PATIENT
  Age: 44 Year
  Sex: Male
  Weight: 113.4 kg

DRUGS (23)
  1. SEROQUEL [Suspect]
     Indication: SCHIZOPHRENIA
     Route: 048
     Dates: start: 19980101, end: 20010101
  2. SEROQUEL [Suspect]
     Indication: BIPOLAR DISORDER
     Route: 048
     Dates: start: 19980101, end: 20010101
  3. SEROQUEL [Suspect]
     Indication: DEPRESSION
     Route: 048
     Dates: start: 19980101, end: 20010101
  4. TRAZODONE HCL [Concomitant]
     Indication: SCHIZOPHRENIA
     Dates: start: 19920101, end: 20000101
  5. TRAZODONE HCL [Concomitant]
     Indication: BIPOLAR DISORDER
     Dates: start: 19920101, end: 20000101
  6. TRAZODONE HCL [Concomitant]
     Indication: DEPRESSION
     Dates: start: 19920101, end: 20000101
  7. TRILAFON [Concomitant]
     Indication: SCHIZOPHRENIA
     Dates: start: 19920101, end: 20000101
  8. TRILAFON [Concomitant]
     Indication: BIPOLAR DISORDER
     Dates: start: 19920101, end: 20000101
  9. TRILAFON [Concomitant]
     Indication: DEPRESSION
     Dates: start: 19920101, end: 20000101
  10. RISPERDAL [Concomitant]
     Indication: SCHIZOPHRENIA
     Dates: start: 20000101, end: 20030101
  11. RISPERDAL [Concomitant]
     Indication: BIPOLAR DISORDER
     Dates: start: 20000101, end: 20030101
  12. RISPERDAL [Concomitant]
     Indication: DEPRESSION
     Dates: start: 20000101, end: 20030101
  13. VALIUM [Concomitant]
     Indication: SCHIZOPHRENIA
     Dosage: 1-5 MG
     Dates: start: 19980101, end: 20010101
  14. VALIUM [Concomitant]
     Indication: BIPOLAR DISORDER
     Dosage: 1-5 MG
     Dates: start: 19980101, end: 20010101
  15. VALIUM [Concomitant]
     Indication: DEPRESSION
     Dosage: 1-5 MG
     Dates: start: 19980101, end: 20010101
  16. DEPAKOTE [Concomitant]
     Indication: SCHIZOPHRENIA
     Dates: start: 20010101
  17. DEPAKOTE [Concomitant]
     Indication: BIPOLAR DISORDER
     Dates: start: 20010101
  18. DEPAKOTE [Concomitant]
     Indication: DEPRESSION
     Dates: start: 20010101
  19. ABILIFY [Concomitant]
  20. CLOZARIL [Concomitant]
  21. GEODON [Concomitant]
  22. HALDOL [Concomitant]
  23. STELAZINE [Concomitant]

REACTIONS (3)
  - ADVERSE DRUG REACTION [None]
  - OBESITY [None]
  - TYPE 2 DIABETES MELLITUS [None]
